FAERS Safety Report 6587917-7 (Version None)
Quarter: 2010Q1

REPORT INFORMATION
  Report Type: 
  Country: None (occurrence: None)
  Receive Date: 20100217
  Receipt Date: 20100217
  Transmission Date: 20100710
  Serious: Yes (Hospitalization)
  Sender: FDA-Public Use
  Company Number: None

PATIENT
  Age: 65 Year
  Sex: Male
  Weight: 118.23 kg

DRUGS (1)
  1. CEFAZOLIN AND DEXTROSE [Suspect]
     Dosage: 50 ML ONCE IV
     Route: 042
     Dates: start: 20091229, end: 20091231

REACTIONS (1)
  - RASH [None]
